FAERS Safety Report 8247731-3 (Version None)
Quarter: 2012Q1

REPORT INFORMATION
  Report Type: 
  Country: None (occurrence: None)
  Receive Date: 20120330
  Receipt Date: 20120322
  Transmission Date: 20120608
  Serious: Yes (Other)
  Sender: FDA-Public Use
  Company Number: US-GLAXOSMITHKLINE-A0964796A

PATIENT
  Age: 13 Year
  Sex: Male

DRUGS (2)
  1. VENTOLIN [Suspect]
     Indication: ASTHMA
     Dosage: 3PUFF AS REQUIRED
     Route: 055
  2. UNKNOWN [Concomitant]

REACTIONS (4)
  - PRODUCT QUALITY ISSUE [None]
  - EXPIRED DRUG ADMINISTERED [None]
  - ASTHMA [None]
  - DRUG ADMINISTRATION ERROR [None]
